FAERS Safety Report 6756391-X (Version None)
Quarter: 2010Q2

REPORT INFORMATION
  Report Type: 
  Country: None (occurrence: None)
  Receive Date: 20100604
  Receipt Date: 20100531
  Transmission Date: 20101027
  Serious: Yes (Hospitalization)
  Sender: FDA-Public Use
  Company Number: JP-SANOFI-AVENTIS-2010SA031321

PATIENT
  Age: 60 Year
  Sex: Female
  Weight: 50 kg

DRUGS (5)
  1. PLAVIX [Suspect]
     Route: 048
     Dates: start: 20090409
  2. ASPIRIN [Concomitant]
     Route: 048
     Dates: start: 20090409
  3. FAMOTIDINE [Concomitant]
     Route: 048
     Dates: start: 20090409
  4. ROSUVASTATIN CALCIUM [Concomitant]
     Route: 048
     Dates: start: 20090409
  5. OLMETEC [Concomitant]
     Route: 048
     Dates: start: 20090409

REACTIONS (1)
  - IN-STENT CORONARY ARTERY RESTENOSIS [None]
